FAERS Safety Report 18768265 (Version 2)
Quarter: 2021Q1

REPORT INFORMATION
  Report Type: Spontaneous
  Country: ES (occurrence: ES)
  Receive Date: 20210121
  Receipt Date: 20210304
  Transmission Date: 20210419
  Serious: Yes (Other)
  Sender: FDA-Public Use
  Company Number: ES-PFIZER INC-2021043563

PATIENT
  Age: 53 Year
  Sex: Male
  Weight: 54.6 kg

DRUGS (6)
  1. VORICONAZOLE. [Suspect]
     Active Substance: VORICONAZOLE
     Indication: FUNGAL INFECTION
     Dosage: 400 MG AT 19 H
     Route: 042
     Dates: start: 20200829, end: 20200829
  2. VORICONAZOLE. [Suspect]
     Active Substance: VORICONAZOLE
     Dosage: 200 MG AT 8 AND 20 H
     Route: 042
     Dates: start: 20200831, end: 20200831
  3. VORICONAZOLE. [Suspect]
     Active Substance: VORICONAZOLE
     Dosage: 400 MG AT 6 H
     Route: 042
     Dates: start: 20200830, end: 20200830
  4. VORICONAZOLE. [Suspect]
     Active Substance: VORICONAZOLE
     Dosage: 200 MG AT 18H
     Route: 042
     Dates: start: 20200830, end: 20200830
  5. VORICONAZOLE. [Suspect]
     Active Substance: VORICONAZOLE
     Dosage: 200 MG AT 8H
     Route: 042
     Dates: start: 20200901, end: 20200901
  6. VORICONAZOLE. [Suspect]
     Active Substance: VORICONAZOLE
     Dosage: 200 MG AT 23H
     Route: 042
     Dates: start: 20200830, end: 20200830

REACTIONS (3)
  - Inappropriate schedule of product administration [Recovered/Resolved]
  - Tremor [Recovered/Resolved]
  - Myoclonus [Recovered/Resolved]

NARRATIVE: CASE EVENT DATE: 20200830
